FAERS Safety Report 12475216 (Version 2)
Quarter: 2016Q3

REPORT INFORMATION
  Report Type: Spontaneous
  Country: US (occurrence: US)
  Receive Date: 20160617
  Receipt Date: 20160721
  Transmission Date: 20161109
  Serious: No
  Sender: FDA-Public Use
  Company Number: US-PFIZER INC-2016291347

PATIENT
  Age: 58 Year
  Sex: Female

DRUGS (1)
  1. SUTENT [Suspect]
     Active Substance: SUNITINIB MALATE
     Indication: NEOPLASM MALIGNANT
     Dosage: 50 MG, CYCLIC (1 CAPSULE BY MOUTH DAILY FOR 14 DAYS AND REST 7 DAYS)
     Route: 048
     Dates: start: 201606

REACTIONS (2)
  - Vomiting [Unknown]
  - Nausea [Unknown]
